FAERS Safety Report 21882572 (Version 1)
Quarter: 2023Q1

REPORT INFORMATION
  Report Type: Spontaneous
  Country: US (occurrence: US)
  Receive Date: 20230119
  Receipt Date: 20230119
  Transmission Date: 20230418
  Serious: Yes (Other)
  Sender: FDA-Public Use
  Company Number: US-SUN PHARMACEUTICAL INDUSTRIES LTD-2023R1-373425

PATIENT
  Age: 60 Year
  Sex: Male

DRUGS (6)
  1. CETIRIZINE [Suspect]
     Active Substance: CETIRIZINE HYDROCHLORIDE
     Indication: Eczema nummular
     Dosage: 10 MILLIGRAM, DAILY
     Route: 065
  2. HYDROCORTISONE [Suspect]
     Active Substance: HYDROCORTISONE
     Indication: Eczema nummular
     Dosage: UNK (2.5% APPLIED TWICE DAILY)
     Route: 061
  3. NAPROXEN [Suspect]
     Active Substance: NAPROXEN
     Indication: Eczema nummular
     Dosage: 500 MILLIGRAM, BID
     Route: 065
  4. PREDNISONE [Suspect]
     Active Substance: PREDNISONE
     Indication: Eczema nummular
     Dosage: UNK (40 MG)
     Route: 048
  5. TRIAMCINOLONE [Suspect]
     Active Substance: TRIAMCINOLONE
     Indication: Eczema nummular
     Dosage: UNK (0.5% OINTMENT TWICE DAILY)
     Route: 061
     Dates: start: 201909
  6. HYDROXYZINE [Suspect]
     Active Substance: HYDROXYZINE HYDROCHLORIDE
     Indication: Eczema nummular
     Dosage: 10 MILLIGRAM, TID
     Route: 065
     Dates: start: 201909

REACTIONS (2)
  - Therapy non-responder [Unknown]
  - Drug ineffective [Unknown]

NARRATIVE: CASE EVENT DATE: 20190901
